FAERS Safety Report 8456577-2 (Version None)
Quarter: 2012Q2

REPORT INFORMATION
  Report Type: 
  Country: None (occurrence: None)
  Receive Date: 20120621
  Receipt Date: 20120613
  Transmission Date: 20120825
  Serious: Yes (Hospitalization, Other)
  Sender: FDA-Public Use
  Company Number: US-MERCK-1109USA01504

PATIENT
  Age: 68 Year
  Sex: Female
  Weight: 59 kg

DRUGS (4)
  1. VIOXX [Concomitant]
     Indication: OSTEOARTHRITIS
     Route: 065
  2. ZETIA [Concomitant]
     Indication: HYPERCHOLESTEROLAEMIA
     Route: 065
  3. FOSAMAX [Suspect]
     Indication: OSTEOPOROSIS
     Route: 048
     Dates: start: 19950101
  4. FOSAMAX [Suspect]
     Indication: OSTEOPENIA
     Route: 048
     Dates: start: 19950101

REACTIONS (40)
  - HAEMORRHAGIC ANAEMIA [None]
  - DRY EYE [None]
  - ASTHMA [None]
  - HYPERGLYCAEMIA [None]
  - TENDONITIS [None]
  - DRUG INEFFECTIVE [None]
  - FAT NECROSIS [None]
  - OSTEONECROSIS [None]
  - HERPES ZOSTER [None]
  - PULMONARY FIBROSIS [None]
  - BASAL CELL CARCINOMA [None]
  - OSTEOARTHRITIS [None]
  - RIB FRACTURE [None]
  - PAIN IN EXTREMITY [None]
  - NEUROPATHY PERIPHERAL [None]
  - APPENDICECTOMY [None]
  - NERVE ROOT COMPRESSION [None]
  - INTERVERTEBRAL DISC PROTRUSION [None]
  - COUGH [None]
  - ANDROGENETIC ALOPECIA [None]
  - SPINAL COMPRESSION FRACTURE [None]
  - FALL [None]
  - MENISCUS LESION [None]
  - LOW TURNOVER OSTEOPATHY [None]
  - URINARY TRACT INFECTION [None]
  - GASTROOESOPHAGEAL REFLUX DISEASE [None]
  - FEMUR FRACTURE [None]
  - ARTHRALGIA [None]
  - INSOMNIA [None]
  - VOMITING [None]
  - NAUSEA [None]
  - ARTHRITIS [None]
  - LIGAMENT SPRAIN [None]
  - HAEMORRHAGE [None]
  - ANAEMIA POSTOPERATIVE [None]
  - BALANCE DISORDER [None]
  - NAIL DISORDER [None]
  - LUNG DISORDER [None]
  - CAROTID BRUIT [None]
  - CHEST PAIN [None]
